FAERS Safety Report 20226612 (Version 3)
Quarter: 2022Q3

REPORT INFORMATION
  Report Type: Report from Study
  Country: JP (occurrence: JP)
  Receive Date: 20211224
  Receipt Date: 20220714
  Transmission Date: 20221027
  Serious: Yes (Other)
  Sender: FDA-Public Use
  Company Number: JP-NOVARTISPH-NVSJ2021JP021007

PATIENT
  Age: 64 Month
  Sex: Male
  Weight: 22.7 kg

DRUGS (27)
  1. ILARIS [Suspect]
     Active Substance: CANAKINUMAB
     Indication: Still^s disease
     Dosage: 85 MG
     Route: 058
     Dates: start: 20200915
  2. ILARIS [Suspect]
     Active Substance: CANAKINUMAB
     Dosage: 85 MG
     Route: 058
     Dates: start: 20201013
  3. ILARIS [Suspect]
     Active Substance: CANAKINUMAB
     Dosage: 85 MG
     Route: 058
     Dates: start: 20201110
  4. ILARIS [Suspect]
     Active Substance: CANAKINUMAB
     Dosage: 85 MG
     Route: 058
     Dates: start: 20201208
  5. ILARIS [Suspect]
     Active Substance: CANAKINUMAB
     Dosage: 88 MG
     Route: 058
     Dates: start: 20210105
  6. ILARIS [Suspect]
     Active Substance: CANAKINUMAB
     Dosage: 88 MG
     Route: 058
     Dates: start: 20210202
  7. ILARIS [Suspect]
     Active Substance: CANAKINUMAB
     Dosage: 88 MG
     Route: 058
     Dates: start: 20210302
  8. ILARIS [Suspect]
     Active Substance: CANAKINUMAB
     Dosage: 88 MG
     Route: 058
     Dates: start: 20210330
  9. ILARIS [Suspect]
     Active Substance: CANAKINUMAB
     Dosage: 88 MG
     Route: 058
     Dates: start: 20210427
  10. ILARIS [Suspect]
     Active Substance: CANAKINUMAB
     Dosage: 88 MG
     Route: 058
     Dates: start: 20210525
  11. ILARIS [Suspect]
     Active Substance: CANAKINUMAB
     Dosage: 88 MG
     Route: 058
     Dates: start: 20210622
  12. ILARIS [Suspect]
     Active Substance: CANAKINUMAB
     Dosage: 82 MG
     Route: 058
     Dates: start: 20210720
  13. ILARIS [Suspect]
     Active Substance: CANAKINUMAB
     Dosage: 82 MG
     Route: 058
     Dates: start: 20210817
  14. ILARIS [Suspect]
     Active Substance: CANAKINUMAB
     Dosage: 82 MG
     Route: 058
     Dates: start: 20210914
  15. NEORAL [Suspect]
     Active Substance: CYCLOSPORINE
     Indication: Still^s disease
     Dosage: 60 MG
     Route: 048
     Dates: start: 20200915, end: 20210104
  16. NEORAL [Suspect]
     Active Substance: CYCLOSPORINE
     Dosage: 50 MG
     Route: 048
     Dates: start: 20210105, end: 20210524
  17. NEORAL [Suspect]
     Active Substance: CYCLOSPORINE
     Dosage: 40 MG
     Route: 048
     Dates: start: 20210525, end: 20210621
  18. NEORAL [Suspect]
     Active Substance: CYCLOSPORINE
     Dosage: 20 MG
     Route: 048
     Dates: start: 20210622
  19. PREDNISOLONE [Suspect]
     Active Substance: PREDNISOLONE
     Indication: Still^s disease
     Dosage: 10 MG
     Route: 048
     Dates: start: 20200915, end: 20200928
  20. PREDNISOLONE [Suspect]
     Active Substance: PREDNISOLONE
     Dosage: 9 MG
     Route: 048
     Dates: start: 20200929, end: 20201011
  21. PREDNISOLONE [Suspect]
     Active Substance: PREDNISOLONE
     Dosage: 8 MG
     Route: 048
     Dates: start: 20201012, end: 20201026
  22. PREDNISOLONE [Suspect]
     Active Substance: PREDNISOLONE
     Dosage: 7 MG
     Route: 048
     Dates: start: 20201027, end: 20201109
  23. PREDNISOLONE [Suspect]
     Active Substance: PREDNISOLONE
     Dosage: 6 MG
     Route: 048
     Dates: start: 20201110, end: 20201205
  24. PREDNISOLONE [Suspect]
     Active Substance: PREDNISOLONE
     Dosage: 5 MG
     Route: 048
     Dates: start: 20201206, end: 20210104
  25. PREDNISOLONE [Suspect]
     Active Substance: PREDNISOLONE
     Dosage: 4 MG
     Route: 048
     Dates: start: 20210105, end: 20210301
  26. PREDNISOLONE [Suspect]
     Active Substance: PREDNISOLONE
     Dosage: 3 MG
     Route: 048
     Dates: start: 20210302, end: 20210426
  27. PREDNISOLONE [Suspect]
     Active Substance: PREDNISOLONE
     Dosage: 2 MG
     Route: 048
     Dates: start: 20210427

REACTIONS (3)
  - Hypogammaglobulinaemia [Not Recovered/Not Resolved]
  - Liver function test increased [Recovering/Resolving]
  - Off label use [Unknown]

NARRATIVE: CASE EVENT DATE: 20200915
